FAERS Safety Report 8353094-5 (Version None)
Quarter: 2012Q2

REPORT INFORMATION
  Report Type: 
  Country: None (occurrence: None)
  Receive Date: 20120511
  Receipt Date: 20120508
  Transmission Date: 20120825
  Serious: Yes (Other)
  Sender: FDA-Public Use
  Company Number: IT-SANOFI-AVENTIS-2012SA029758

PATIENT
  Age: 86 Year
  Sex: Female

DRUGS (2)
  1. LASIX [Suspect]
     Route: 048
     Dates: start: 20120310, end: 20120326
  2. ENALAPRIL MALEATE [Suspect]
     Route: 048
     Dates: start: 20110327, end: 20120326

REACTIONS (2)
  - PRESYNCOPE [None]
  - MALAISE [None]
